FAERS Safety Report 5838525-4 (Version None)
Quarter: 2008Q3

REPORT INFORMATION
  Report Type: 
  Country: None (occurrence: None)
  Receive Date: 20080808
  Receipt Date: 20080731
  Transmission Date: 20090109
  Serious: Yes (Death)
  Sender: FDA-Public Use
  Company Number: HK-ROCHE-578604

PATIENT
  Sex: Female
  Weight: 58 kg

DRUGS (19)
  1. CAPECITABINE [Suspect]
     Route: 065
     Dates: start: 20080306, end: 20080326
  2. BEVACIZUMAB [Suspect]
     Dosage: AS PER PROTOCOL: 10 MG/KG Q2W, OR 15 MG/KG Q3W. ROUTE REPORTED AS: INFUSION. DOSAGE FORM REPORTED A+
     Route: 042
     Dates: start: 20071114, end: 20071204
  3. BEVACIZUMAB [Suspect]
     Route: 042
     Dates: start: 20071211
  4. BEVACIZUMAB [Suspect]
     Route: 042
     Dates: start: 20080109
  5. PACLITAXEL [Concomitant]
     Dates: start: 20071114
  6. PACLITAXEL [Concomitant]
     Dates: start: 20071211
  7. CARBOPLATIN [Concomitant]
     Dates: start: 20071114
  8. CARBOPLATIN [Concomitant]
     Dates: start: 20071211
  9. ZOPICLONE [Concomitant]
     Dosage: THERAPY AS NEEDED.
     Dates: start: 20071129, end: 20071130
  10. NIFEDIPINE [Concomitant]
     Dates: start: 20061202
  11. GASTROCAIN [Concomitant]
     Dosage: DRUG: GASTROCAINE
     Dates: start: 20071129
  12. CHLORPHENIRAMINE MALEATE [Concomitant]
     Dosage: THERAPY: AS NEEDED.
     Dates: start: 20071202, end: 20071209
  13. CHLORPHENIRAMINE MALEATE [Concomitant]
     Dates: start: 20080128
  14. THYMOL [Concomitant]
     Dosage: NAME: THYMOL GARGLE COMPOUND MOUTHWASH. TDD: 4 APP PRN.
     Dates: start: 20080128
  15. LOMOTIL [Concomitant]
     Dates: start: 20080313
  16. DOLOGESIC [Concomitant]
     Dates: start: 20080313
  17. CHLORAMPHENICOL EYE OINTMENT [Concomitant]
     Dosage: TDD: 1 APP
     Dates: start: 20080313
  18. AQUEOUS CREAM [Concomitant]
     Dosage: TDD: 2 APP.
     Dates: start: 20080313
  19. ALUMINIUM HYDROXIDE/MAGNESIUM HYDROXIDE [Concomitant]
     Dates: start: 20080313

REACTIONS (1)
  - DEATH [None]
